FAERS Safety Report 4690709-7 (Version None)
Quarter: 2005Q2

REPORT INFORMATION
  Report Type: 
  Country: None (occurrence: None)
  Receive Date: 20050615
  Receipt Date: 20050518
  Transmission Date: 20051028
  Serious: Yes (Disabling)
  Sender: FDA-Public Use
  Company Number: GB-GLAXOSMITHKLINE-B0383851A

PATIENT
  Age: 53 Year
  Sex: Male

DRUGS (1)
  1. NIQUITIN CQ 2MG LOZENGE [Suspect]
     Route: 002
     Dates: start: 20040101

REACTIONS (2)
  - DENTAL CARIES [None]
  - DRUG ABUSER [None]
